FAERS Safety Report 5731392-9 (Version None)
Quarter: 2008Q2

REPORT INFORMATION
  Report Type: 
  Country: None (occurrence: None)
  Receive Date: 20080506
  Receipt Date: 20080506
  Transmission Date: 20081010
  Serious: Yes (Hospitalization)
  Sender: FDA-Public Use
  Company Number: None

PATIENT
  Sex: Female
  Weight: 74 kg

DRUGS (1)
  1. TEMOZOLOMIDE [Suspect]
     Dosage: 5880 MG

REACTIONS (10)
  - ALOPECIA [None]
  - CONSTIPATION [None]
  - DEHYDRATION [None]
  - DIZZINESS [None]
  - FATIGUE [None]
  - ILL-DEFINED DISORDER [None]
  - INFECTION [None]
  - TACHYCARDIA [None]
  - URINE OUTPUT INCREASED [None]
  - VOMITING [None]
